FAERS Safety Report 20161915 (Version 1)
Quarter: 2021Q4

REPORT INFORMATION
  Report Type: Spontaneous
  Country: US (occurrence: None)
  Receive Date: 20211208
  Receipt Date: 20211208
  Transmission Date: 20220303
  Serious: Yes (Hospitalization)
  Sender: FDA-Public Use
  Company Number: None

PATIENT
  Age: 64 Year
  Sex: Male
  Weight: 141.7 kg

DRUGS (1)
  1. RITUXIMAB [Suspect]
     Active Substance: RITUXIMAB
     Dates: end: 20211012

REACTIONS (4)
  - COVID-19 [None]
  - Dyspnoea [None]
  - Cough [None]
  - COVID-19 pneumonia [None]

NARRATIVE: CASE EVENT DATE: 20211026
